FAERS Safety Report 9296056 (Version 1)
Quarter: 2013Q2

REPORT INFORMATION
  Report Type: Spontaneous
  Country: GB (occurrence: GB)
  Receive Date: 20130517
  Receipt Date: 20130517
  Transmission Date: 20140414
  Serious: Yes (Disabling)
  Sender: FDA-Public Use
  Company Number: GB-ASTRAZENECA-2013SE32930

PATIENT
  Age: 26 Year
  Sex: Female
  Weight: 101.6 kg

DRUGS (3)
  1. QUETIAPINE [Suspect]
     Indication: BIPOLAR DISORDER
     Route: 048
     Dates: start: 20070401, end: 20130210
  2. ASCORBIC ACID [Concomitant]
  3. FISH OIL [Concomitant]

REACTIONS (1)
  - Anger [Recovering/Resolving]
